FAERS Safety Report 13538825 (Version 2)
Quarter: 2017Q4

REPORT INFORMATION
  Report Type: Spontaneous
  Country: US (occurrence: US)
  Receive Date: 20170512
  Receipt Date: 20171128
  Transmission Date: 20180320
  Serious: No
  Sender: FDA-Public Use
  Company Number: US-JNJFOC-20170314454

PATIENT
  Sex: Male

DRUGS (1)
  1. INVEGA [Suspect]
     Active Substance: PALIPERIDONE
     Indication: SCHIZOPHRENIA
     Dosage: AN UNSPECIFIED DOSE, IN VARYING DOSES OF 3 MG EVERY MORNING, 6 MG EVERY MORNING
     Route: 048
     Dates: start: 20090324, end: 20090819

REACTIONS (2)
  - Emotional disorder [Unknown]
  - Gynaecomastia [Unknown]
